FAERS Safety Report 24282079 (Version 1)
Quarter: 2024Q3

REPORT INFORMATION
  Report Type: Spontaneous
  Country: US (occurrence: None)
  Receive Date: 20240903
  Receipt Date: 20240903
  Transmission Date: 20241016
  Serious: Yes (Other)
  Sender: Public
  Company Number: None

PATIENT
  Age: 53 Year
  Sex: Male
  Weight: 86.4 kg

DRUGS (7)
  1. DOVATO [Suspect]
     Active Substance: DOLUTEGRAVIR SODIUM\LAMIVUDINE
     Indication: HIV infection
     Dates: start: 20180903
  2. ACYCLOVIR [Concomitant]
     Active Substance: ACYCLOVIR
  3. LOSARTAN POTASSIUM [Concomitant]
  4. FAMOTIDINE [Concomitant]
     Active Substance: FAMOTIDINE
  5. FINASTERIDE [Concomitant]
     Active Substance: FINASTERIDE
  6. RELPAX [Concomitant]
  7. Mens Multi Vitamins [Concomitant]

REACTIONS (15)
  - Product substitution issue [None]
  - Weight increased [None]
  - Abdominal rigidity [None]
  - Asthenia [None]
  - Muscle atrophy [None]
  - Lip dry [None]
  - Dry eye [None]
  - Myalgia [None]
  - Hypertension [None]
  - Gastrooesophageal reflux disease [None]
  - Nervous system disorder [None]
  - Arthropathy [None]
  - Ill-defined disorder [None]
  - Adverse drug reaction [None]
  - Emotional distress [None]

NARRATIVE: CASE EVENT DATE: 20230101
